FAERS Safety Report 8941859 (Version 1)
Quarter: 2012Q4

REPORT INFORMATION
  Report Type: 
  Country: US (occurrence: US)
  Receive Date: 20121130
  Receipt Date: 20121130
  Transmission Date: 20130627
  Serious: No
  Sender: FDA-Public Use
  Company Number: US-ASTRAZENECA-2012SE87513

PATIENT
  Age: 55 Year
  Sex: Female
  Weight: 53.5 kg

DRUGS (2)
  1. SEROQUEL XR [Suspect]
     Indication: MAJOR DEPRESSION
     Route: 048
     Dates: start: 20120818, end: 201211
  2. SEROQUEL XR [Suspect]
     Indication: MAJOR DEPRESSION
     Route: 048
     Dates: start: 201211

REACTIONS (5)
  - Headache [Unknown]
  - Feeling abnormal [Unknown]
  - Malaise [Unknown]
  - Asthenia [Unknown]
  - Drug dose omission [Unknown]
